FAERS Safety Report 9353704 (Version 1)
Quarter: 2013Q2

REPORT INFORMATION
  Report Type: Spontaneous
  Country: US (occurrence: None)
  Receive Date: 20130617
  Receipt Date: 20130617
  Transmission Date: 20140414
  Serious: Yes (Disabling, Other)
  Sender: FDA-Public Use
  Company Number: None

PATIENT
  Age: 21 Year
  Sex: Male
  Weight: 75 kg

DRUGS (1)
  1. FINASTERIDE/PROSCA 5MG MERCK + CO. [Suspect]
     Route: 048
     Dates: start: 20110518, end: 20120604

REACTIONS (25)
  - Penile size reduced [None]
  - Testicular disorder [None]
  - Cognitive disorder [None]
  - Amnesia [None]
  - Insomnia [None]
  - Muscle atrophy [None]
  - Eye pruritus [None]
  - Dry skin [None]
  - Hypotrichosis [None]
  - Alcohol intolerance [None]
  - Food intolerance [None]
  - Skin infection [None]
  - Rhinitis [None]
  - Semen volume decreased [None]
  - Semen viscosity decreased [None]
  - Libido decreased [None]
  - Semen discolouration [None]
  - Orgasmic sensation decreased [None]
  - Quality of life decreased [None]
  - Emotional disorder [None]
  - Muscle disorder [None]
  - Impaired healing [None]
  - Erectile dysfunction [None]
  - Erectile dysfunction [None]
  - Penis disorder [None]
